FAERS Safety Report 20417749 (Version 1)
Quarter: 2022Q1

REPORT INFORMATION
  Report Type: Report from Study
  Country: BE (occurrence: BE)
  Receive Date: 20220202
  Receipt Date: 20220202
  Transmission Date: 20220423
  Serious: Yes (Hospitalization)
  Sender: FDA-Public Use
  Company Number: BE-JNJFOC-20210300481

PATIENT
  Age: 45 Year
  Sex: Male
  Weight: 86 kg

DRUGS (11)
  1. IBRUTINIB [Suspect]
     Active Substance: IBRUTINIB
     Indication: Mantle cell lymphoma
     Dosage: RECENT DOSE PRIOR TO EVENT: 12 FEB 2021
     Route: 048
     Dates: start: 20201026
  2. RITUXIMAB [Concomitant]
     Active Substance: RITUXIMAB
     Indication: Mantle cell lymphoma
     Dosage: RECENT DOSE PRIOR TO EVENT: 18 FEB 2021
     Route: 065
     Dates: start: 20201026
  3. CYCLOPHOSPHAMIDE [Concomitant]
     Active Substance: CYCLOPHOSPHAMIDE
     Indication: Mantle cell lymphoma
     Dosage: RECENT DOSE PRIOR TO EVENT: 18 FEB 2021
     Route: 065
     Dates: start: 20201026
  4. DOXORUBICIN [Concomitant]
     Active Substance: DOXORUBICIN
     Indication: Mantle cell lymphoma
     Dosage: RECENT DOSE PRIOR TO EVENT: 18 FEB 2021
     Route: 065
     Dates: start: 20201026
  5. PREDNISONE [Concomitant]
     Active Substance: PREDNISONE
     Indication: Mantle cell lymphoma
     Dosage: RECENT DOSE PRIOR TO EVENT: 18 FEB 2021
     Route: 065
     Dates: start: 20201026
  6. DEXAMETHASONE [Concomitant]
     Active Substance: DEXAMETHASONE
     Indication: Mantle cell lymphoma
     Dosage: RECENT DOSE PRIOR TO EVENT: 18 FEB 2021
     Route: 065
     Dates: start: 20201026
  7. CYTARABINE [Concomitant]
     Active Substance: CYTARABINE
     Indication: Mantle cell lymphoma
     Dosage: RECENT DOSE PRIOR TO EVENT: 18 FEB 2021
     Route: 065
     Dates: start: 20201026
  8. CISPLATIN [Concomitant]
     Active Substance: CISPLATIN
     Indication: Mantle cell lymphoma
     Dosage: RECENT DOSE PRIOR TO EVENT: 18 FEB 2021
     Route: 065
     Dates: start: 20201026
  9. VINCRISTINE [Concomitant]
     Active Substance: VINCRISTINE
     Indication: Mantle cell lymphoma
     Dosage: RECENT DOSE PRIOR TO EVENT: 18 FEB 2021
     Route: 065
     Dates: start: 20201026
  10. MOVICOL [Concomitant]
     Active Substance: POLYETHYLENE GLYCOL 3350\POTASSIUM CHLORIDE\SODIUM BICARBONATE\SODIUM CHLORIDE
     Indication: Large intestinal obstruction
     Dates: start: 20210223
  11. FILGRASTIM [Concomitant]
     Active Substance: FILGRASTIM
     Indication: Large intestinal obstruction
     Dates: start: 20210222, end: 20210228

REACTIONS (1)
  - Febrile neutropenia [Recovered/Resolved]

NARRATIVE: CASE EVENT DATE: 20210226
